FAERS Safety Report 16668317 (Version 4)
Quarter: 2019Q3

REPORT INFORMATION
  Report Type: Spontaneous
  Country: US (occurrence: US)
  Receive Date: 20190805
  Receipt Date: 20190926
  Transmission Date: 20191004
  Serious: Yes (Hospitalization, Other)
  Sender: FDA-Public Use
  Company Number: US-PFIZER INC-2019330865

PATIENT
  Age: 52 Year
  Sex: Female
  Weight: 53.74 kg

DRUGS (2)
  1. PREMARIN [Suspect]
     Active Substance: ESTROGENS, CONJUGATED
     Indication: VULVOVAGINAL DRYNESS
     Dosage: 0.5 G, UNK [0.5 G 3 TIMES A WEEK]
     Dates: start: 2014, end: 20190723
  2. PREMARIN [Suspect]
     Active Substance: ESTROGENS, CONJUGATED
     Dosage: 0.5 G, UNK [3X WK]
     Dates: start: 2013

REACTIONS (2)
  - Off label use [Recovered/Resolved]
  - Oestrogen receptor positive breast cancer [Recovered/Resolved]

NARRATIVE: CASE EVENT DATE: 2013
